FAERS Safety Report 18232570 (Version 10)
Quarter: 2022Q1

REPORT INFORMATION
  Report Type: Spontaneous
  Country: US (occurrence: US)
  Receive Date: 20200904
  Receipt Date: 20220111
  Transmission Date: 20220423
  Serious: Yes (Other)
  Sender: FDA-Public Use
  Company Number: US-PFIZER INC-2020341289

PATIENT
  Age: 76 Year
  Sex: Female

DRUGS (4)
  1. IBRANCE [Suspect]
     Active Substance: PALBOCICLIB
     Indication: Breast cancer female
     Dosage: 125 MG
  2. IBRANCE [Suspect]
     Active Substance: PALBOCICLIB
     Dosage: 125 MG
  3. IBRANCE [Suspect]
     Active Substance: PALBOCICLIB
     Dosage: 125 MG, CYCLIC (EVERY OTHER DAY FOR 21 DAYS FOLLOWED BY 5 DAYS OFF)
     Route: 048
  4. FASLODEX [Concomitant]
     Active Substance: FULVESTRANT
     Dosage: UNK

REACTIONS (13)
  - Fall [Unknown]
  - Spinal compression fracture [Unknown]
  - Neutropenia [Unknown]
  - Dental operation [Unknown]
  - Neoplasm progression [Unknown]
  - Dysphonia [Unknown]
  - Overweight [Unknown]
  - Amnesia [Unknown]
  - Neutrophil count decreased [Unknown]
  - Feeding disorder [Unknown]
  - Weight decreased [Unknown]
  - White blood cell count decreased [Unknown]
  - Off label use [Unknown]
